FAERS Safety Report 5805753-3 (Version None)
Quarter: 2008Q3

REPORT INFORMATION
  Report Type: 
  Country: None (occurrence: None)
  Receive Date: 20080710
  Receipt Date: 20080701
  Transmission Date: 20090109
  Serious: Yes (Other)
  Sender: FDA-Public Use
  Company Number: GB-JNJFOC-20080403512

PATIENT
  Sex: Female

DRUGS (6)
  1. PREZISTA [Suspect]
     Indication: HIV INFECTION
     Route: 048
  2. ABACAVIR [Concomitant]
     Indication: HIV INFECTION
  3. SAQUINAVIR [Concomitant]
     Indication: HIV INFECTION
  4. RITONAVIR [Concomitant]
     Indication: HIV INFECTION
  5. DIDANOSINE [Concomitant]
     Indication: HIV INFECTION
  6. KALETRA [Concomitant]
     Indication: HIV INFECTION

REACTIONS (2)
  - ANGIOEDEMA [None]
  - RASH [None]
